FAERS Safety Report 16743749 (Version 2)
Quarter: 2019Q3

REPORT INFORMATION
  Report Type: Spontaneous
  Country: US (occurrence: US)
  Receive Date: 20190827
  Receipt Date: 20190903
  Transmission Date: 20191005
  Serious: Yes (Other)
  Sender: FDA-Public Use
  Company Number: US-TAKEDA-2019TUS049305

PATIENT
  Age: 23 Year
  Sex: Female
  Weight: 57.6 kg

DRUGS (1)
  1. ENTYVIO [Suspect]
     Active Substance: VEDOLIZUMAB
     Indication: COLITIS ULCERATIVE
     Dosage: 300 MILLIGRAM, Q8WEEKS
     Route: 042
     Dates: start: 201607

REACTIONS (6)
  - Monocyte percentage decreased [Unknown]
  - Blood urea nitrogen/creatinine ratio increased [Unknown]
  - Monocyte count decreased [Unknown]
  - Mean cell haemoglobin concentration decreased [Unknown]
  - Hepatic enzyme increased [Unknown]
  - Blood urea increased [Unknown]

NARRATIVE: CASE EVENT DATE: 20190805
